FAERS Safety Report 6833842-3 (Version None)
Quarter: 2010Q3

REPORT INFORMATION
  Report Type: 
  Country: None (occurrence: None)
  Receive Date: 20100712
  Receipt Date: 20070404
  Transmission Date: 20110219
  Serious: No
  Sender: FDA-Public Use
  Company Number: US-PFIZER INC-2007028086

PATIENT
  Sex: Female
  Weight: 65.77 kg

DRUGS (11)
  1. CHANTIX [Suspect]
     Indication: SMOKING CESSATION THERAPY
     Dates: start: 20070305, end: 20070326
  2. TERIPARATIDE [Concomitant]
     Route: 050
     Dates: start: 20061001
  3. ALBUTEROL [Concomitant]
  4. VICODIN [Concomitant]
     Indication: BACK DISORDER
  5. CLARITIN [Concomitant]
  6. VITAMINS [Concomitant]
  7. SUDAFED 12 HOUR [Concomitant]
  8. DIFLUCAN [Concomitant]
  9. IBANDRONATE SODIUM [Concomitant]
  10. ACTONEL [Concomitant]
  11. LAXATIVES [Concomitant]

REACTIONS (4)
  - ABDOMINAL DISTENSION [None]
  - CONSTIPATION [None]
  - STRESS [None]
  - WEIGHT INCREASED [None]
